FAERS Safety Report 4815965-3 (Version None)
Quarter: 2005Q4

REPORT INFORMATION
  Report Type: 
  Country: None (occurrence: None)
  Receive Date: 20051031
  Receipt Date: 20050721
  Transmission Date: 20060501
  Serious: Yes (Hospitalization)
  Sender: FDA-Public Use
  Company Number: AT-ROCHE-411374

PATIENT
  Age: 43 Year
  Sex: Female
  Weight: 87 kg

DRUGS (4)
  1. CAPECITABINE [Suspect]
     Indication: BREAST CANCER
     Dosage: TWO WEEKS TREATMENT FOLLOWED BY ONE WEEK REST.
     Route: 048
     Dates: start: 20050601, end: 20050719
  2. DOCETAXEL [Suspect]
     Indication: BREAST CANCER
     Route: 042
     Dates: start: 20050601
  3. EPIRUBICIN [Suspect]
     Indication: BREAST CANCER
     Route: 042
     Dates: start: 20050601
  4. PANTOPRAZOLE SODIUM [Concomitant]
     Dates: start: 20050601

REACTIONS (3)
  - HYPOTENSION [None]
  - MENORRHAGIA [None]
  - PANCYTOPENIA [None]
